FAERS Safety Report 4934859-6 (Version None)
Quarter: 2006Q1

REPORT INFORMATION
  Report Type: 
  Country: None (occurrence: None)
  Receive Date: 20060302
  Receipt Date: 20060217
  Transmission Date: 20060701
  Serious: Yes (Death)
  Sender: FDA-Public Use
  Company Number: 2006018248

PATIENT
  Age: 77 Year
  Sex: Female

DRUGS (4)
  1. LIPITOR [Suspect]
     Indication: CEREBROVASCULAR DISORDER
     Dosage: 20 MG (20 MG, 1 IN 1 D), ORAL
     Route: 048
     Dates: start: 20051201
  2. PLAVIX [Concomitant]
  3. PANTOPRAZOLE SODIUM [Concomitant]
  4. CENTYL K (BENDROFLUMETHIAZIDE, POTASSIUM CHLORIDE) [Concomitant]

REACTIONS (3)
  - CEREBRAL ISCHAEMIA [None]
  - RENAL FAILURE [None]
  - RHABDOMYOLYSIS [None]
